FAERS Safety Report 9065858 (Version 1)
Quarter: 2013Q1

REPORT INFORMATION
  Report Type: Report from Study
  Country: US (occurrence: US)
  Receive Date: 20130131
  Receipt Date: 20130131
  Transmission Date: 20140127
  Serious: No
  Sender: FDA-Public Use
  Company Number: US-ABBOTT-12P-163-0932065-00

PATIENT
  Age: 47 Year
  Sex: Male

DRUGS (9)
  1. HUMIRA [Suspect]
     Indication: PSORIATIC ARTHROPATHY
     Route: 058
     Dates: start: 20120312
  2. PREDNISONE [Concomitant]
     Indication: PRODUCT USED FOR UNKNOWN INDICATION
     Dosage: DAILY
  3. ENALAPRIL [Concomitant]
     Indication: HYPERTENSION
     Dosage: DAILY
  4. METHOTREXATE [Concomitant]
     Indication: PRODUCT USED FOR UNKNOWN INDICATION
  5. PERCOCET [Concomitant]
     Indication: NECK PAIN
     Dosage: EVERY FOUR HOURS
  6. PERCOCET [Concomitant]
     Indication: BACK PAIN
  7. OXYCONTIN [Concomitant]
     Indication: NECK PAIN
     Dosage: EVERY 7-8 HOURS
  8. OXYCONTIN [Concomitant]
     Indication: BACK PAIN
  9. FOLIC ACID [Concomitant]
     Indication: SUPPLEMENTATION THERAPY
     Dosage: DAILY

REACTIONS (3)
  - Abdominal discomfort [Recovered/Resolved]
  - Nausea [Recovered/Resolved]
  - Drug dose omission [Recovered/Resolved]
